FAERS Safety Report 9206699 (Version 1)
Quarter: 2013Q1

REPORT INFORMATION
  Report Type: Spontaneous
  Country: US (occurrence: None)
  Receive Date: 20120731
  Receipt Date: 20120731
  Transmission Date: 20140127
  Serious: Yes (Other)
  Sender: FDA-Public Use
  Company Number: AMAG201203021

PATIENT
  Age: 19 Year
  Sex: Female
  Weight: 75 kg

DRUGS (7)
  1. FERAHEME (FERUMOXYTOL) INJECTION, 510MG [Suspect]
     Indication: ANAEMIA
     Route: 042
     Dates: start: 20120416, end: 20120416
  2. AZATHIOPRINE (AZATHIOPRINE) [Concomitant]
  3. ERGOCALCIFEROL (ERGOCALCIFEROL) [Concomitant]
  4. FERROUS SULFATE(FERROUS SULFATE) [Concomitant]
  5. HYOSCYAMINE (HYOSCYAMINE) [Concomitant]
  6. MESALAMINE (MESALAMINE) [Concomitant]
  7. REMICADE (INFLIXIMAB) [Concomitant]

REACTIONS (4)
  - Hypersensitivity [None]
  - Chest discomfort [None]
  - Flushing [None]
  - Paraesthesia oral [None]
